FAERS Safety Report 20551269 (Version 1)
Quarter: 2022Q1

REPORT INFORMATION
  Report Type: Spontaneous
  Country: FR (occurrence: FR)
  Receive Date: 20220304
  Receipt Date: 20220304
  Transmission Date: 20220424
  Serious: Yes (Congenital Anomaly)
  Sender: FDA-Public Use
  Company Number: FR-ABBVIE-22K-056-4299692-00

PATIENT
  Sex: Female

DRUGS (1)
  1. VALPROIC ACID [Suspect]
     Active Substance: VALPROIC ACID
     Indication: Maternal exposure timing unspecified
     Route: 064

REACTIONS (6)
  - Dyspraxia [Not Recovered/Not Resolved]
  - Scoliosis [Not Recovered/Not Resolved]
  - Neurodevelopmental disorder [Not Recovered/Not Resolved]
  - Hypermobility syndrome [Not Recovered/Not Resolved]
  - Dyscalculia [Not Recovered/Not Resolved]
  - Foetal exposure during pregnancy [Unknown]

NARRATIVE: CASE EVENT DATE: 20040101
